FAERS Safety Report 24926420 (Version 2)
Quarter: 2025Q3

REPORT INFORMATION
  Report Type: Report from Study
  Country: US (occurrence: US)
  Receive Date: 20250205
  Receipt Date: 20250809
  Transmission Date: 20251021
  Serious: Yes (Other)
  Sender: ALEXION PHARMACEUTICALS
  Company Number: US-AstraZeneca-CH-00799358A

PATIENT
  Sex: Male
  Weight: 29.025 kg

DRUGS (1)
  1. SELUMETINIB [Suspect]
     Active Substance: SELUMETINIB
     Indication: Benign neoplasm
     Dosage: 25 MILLIGRAM, BID
     Dates: start: 202412

REACTIONS (2)
  - Rectal haemorrhage [Unknown]
  - Faeces discoloured [Not Recovered/Not Resolved]
